FAERS Safety Report 15671627 (Version 4)
Quarter: 2019Q1

REPORT INFORMATION
  Report Type: Report from Study
  Country: US (occurrence: US)
  Receive Date: 20181129
  Receipt Date: 20190225
  Transmission Date: 20190417
  Serious: Yes (Other)
  Sender: FDA-Public Use
  Company Number: US-TESAROUBC-US-2018TSO04633

PATIENT
  Age: 63 Year
  Sex: Female

DRUGS (6)
  1. ZEJULA [Suspect]
     Active Substance: NIRAPARIB
     Dosage: 300 MG, QD
     Route: 048
  2. PEPCID [Concomitant]
     Active Substance: FAMOTIDINE
     Indication: PRODUCT USED FOR UNKNOWN INDICATION
     Dosage: UNK
  3. ZOFRAN [Concomitant]
     Active Substance: ONDANSETRON HYDROCHLORIDE
     Indication: PRODUCT USED FOR UNKNOWN INDICATION
  4. TYLENOL [Concomitant]
     Active Substance: ACETAMINOPHEN
     Indication: PRODUCT USED FOR UNKNOWN INDICATION
  5. ZEJULA [Suspect]
     Active Substance: NIRAPARIB
     Indication: OVARIAN CANCER
     Dosage: 300 MG, QD
     Route: 048
     Dates: start: 20170101, end: 201809
  6. LETROZOLE. [Concomitant]
     Active Substance: LETROZOLE
     Indication: PRODUCT USED FOR UNKNOWN INDICATION
     Dosage: UNK

REACTIONS (26)
  - Metastases to abdominal cavity [Unknown]
  - Intentional underdose [Unknown]
  - Infection [Unknown]
  - Osteopenia [Unknown]
  - Platelet count decreased [Recovered/Resolved]
  - Pancreatic atrophy [Unknown]
  - Gastrointestinal disorder [Unknown]
  - Carbohydrate antigen 125 increased [Unknown]
  - Mitral valve calcification [Unknown]
  - Hydronephrosis [Unknown]
  - Hepatic steatosis [Unknown]
  - Hepatomegaly [Unknown]
  - Arteriosclerosis [Unknown]
  - Vascular complication associated with device [Unknown]
  - Feeling abnormal [Unknown]
  - Burning sensation [Unknown]
  - Haemoglobin decreased [Recovered/Resolved]
  - Spinal ligament ossification [Unknown]
  - Cholelithiasis [Unknown]
  - Nausea [Not Recovered/Not Resolved]
  - Fatigue [Unknown]
  - Haemorrhage [Unknown]
  - Hypoaesthesia [Unknown]
  - Lymphadenopathy [Unknown]
  - Diarrhoea [Unknown]
  - Abdominal pain upper [Unknown]

NARRATIVE: CASE EVENT DATE: 20180918
